FAERS Safety Report 15066904 (Version 2)
Quarter: 2018Q3

REPORT INFORMATION
  Report Type: Report from Study
  Country: MX (occurrence: MX)
  Receive Date: 20180626
  Receipt Date: 20180704
  Transmission Date: 20181010
  Serious: Yes (Other)
  Sender: FDA-Public Use
  Company Number: PHHY2018MX030032

PATIENT
  Age: 60 Year
  Sex: Female

DRUGS (4)
  1. CO?DIOVAN [Suspect]
     Active Substance: HYDROCHLOROTHIAZIDE\VALSARTAN
     Dosage: 1 (160/12.5 MG) IN THE MORNING
     Route: 048
     Dates: start: 201804
  2. FEMARA [Suspect]
     Active Substance: LETROZOLE
     Indication: BREAST CANCER
     Dosage: 2.5 MG (1), QD
     Route: 048
     Dates: start: 201604, end: 201804
  3. CO?DIOVAN [Suspect]
     Active Substance: HYDROCHLOROTHIAZIDE\VALSARTAN
     Indication: HYPERTENSION
     Dosage: 1 (160/12.5 MG) IN THE MORNING
     Route: 048
     Dates: start: 201706
  4. OMEGA 3 [Concomitant]
     Active Substance: OMEGA-3 FATTY ACIDS
     Indication: ASTHENIA
     Dosage: 2 OT (1 IN THE MORNING AND 1 AT NIGHT)
     Route: 065
     Dates: start: 201706

REACTIONS (6)
  - Respiratory arrest [Unknown]
  - Platelet count decreased [Unknown]
  - Leukaemia [Not Recovered/Not Resolved]
  - Haemoglobin decreased [Unknown]
  - Rash [Recovered/Resolved]
  - White blood cell count increased [Unknown]

NARRATIVE: CASE EVENT DATE: 201611
